FAERS Safety Report 15362041 (Version 2)
Quarter: 2018Q4

REPORT INFORMATION
  Report Type: Spontaneous
  Country: US (occurrence: US)
  Receive Date: 20180907
  Receipt Date: 20181023
  Transmission Date: 20190204
  Serious: Yes (Other)
  Sender: FDA-Public Use
  Company Number: US-GLAXOSMITHKLINE-US2018GSK162068

PATIENT
  Sex: Male

DRUGS (1)
  1. ADVAIR DISKUS [Suspect]
     Active Substance: FLUTICASONE PROPIONATE\SALMETEROL XINAFOATE
     Indication: PRODUCT USED FOR UNKNOWN INDICATION
     Dosage: 1 PUFF(S), BID
     Route: 055

REACTIONS (7)
  - Cataract [Unknown]
  - Glaucoma surgery [Unknown]
  - Visual impairment [Unknown]
  - Lacrimal gland operation [Unknown]
  - Cataract operation [Unknown]
  - Glaucoma [Unknown]
  - Device failure [Unknown]

NARRATIVE: CASE EVENT DATE: 2010
